FAERS Safety Report 4312652-5 (Version None)
Quarter: 2004Q1

REPORT INFORMATION
  Report Type: 
  Country: None (occurrence: None)
  Receive Date: 20040305
  Receipt Date: 20040219
  Transmission Date: 20041129
  Serious: Yes (Death)
  Sender: FDA-Public Use
  Company Number: C2003-3301.01

PATIENT
  Age: 35 Year
  Sex: Male
  Weight: 80.7403 kg

DRUGS (1)
  1. CLOZAPINE [Suspect]
     Dosage: 300MG Q HS, ORAL
     Route: 048
     Dates: start: 20021101

REACTIONS (2)
  - DRUG TOXICITY [None]
  - PHARMACEUTICAL PRODUCT COMPLAINT [None]
